FAERS Safety Report 4957844-7 (Version None)
Quarter: 2006Q1

REPORT INFORMATION
  Report Type: 
  Country: None (occurrence: None)
  Receive Date: 20060324
  Receipt Date: 20060309
  Transmission Date: 20060701
  Serious: Yes (Hospitalization)
  Sender: FDA-Public Use
  Company Number: CED-AE-06-002

PATIENT
  Age: 33 Year
  Sex: Female

DRUGS (1)
  1. METHIMAZOLE [Suspect]
     Dosage: 80 MG

REACTIONS (9)
  - AGRANULOCYTOSIS [None]
  - APHTHOUS STOMATITIS [None]
  - HYPOTENSION [None]
  - LYMPHADENOPATHY [None]
  - OROPHARYNGEAL CANDIDIASIS [None]
  - PYREXIA [None]
  - TACHYCARDIA [None]
  - TACHYPNOEA [None]
  - TONSILLITIS [None]
